FAERS Safety Report 13418742 (Version 1)
Quarter: 2017Q2

REPORT INFORMATION
  Report Type: Report from Study
  Country: US (occurrence: US)
  Receive Date: 20170406
  Receipt Date: 20170406
  Transmission Date: 20170830
  Serious: Yes (Hospitalization, Other)
  Sender: FDA-Public Use
  Company Number: US-AMGEN-USASL2017049354

PATIENT
  Age: 37 Year
  Sex: Female

DRUGS (1)
  1. ENBREL [Suspect]
     Active Substance: ETANERCEPT
     Indication: PSORIATIC ARTHROPATHY
     Dosage: UNK
     Route: 065

REACTIONS (8)
  - Oropharyngeal pain [Unknown]
  - Nausea [Unknown]
  - Sepsis [Unknown]
  - Cystitis [Unknown]
  - Kidney infection [Unknown]
  - Influenza like illness [Unknown]
  - Confusional state [Unknown]
  - Urinary tract infection [Unknown]
